FAERS Safety Report 4683748-3 (Version None)
Quarter: 2005Q2

REPORT INFORMATION
  Report Type: 
  Country: None (occurrence: None)
  Receive Date: 20050602
  Receipt Date: 20050307
  Transmission Date: 20051028
  Serious: No
  Sender: FDA-Public Use
  Company Number: 200421221BWH

PATIENT
  Age: 57 Year
  Sex: Male
  Weight: 117.9352 kg

DRUGS (4)
  1. LEVITRA [Suspect]
     Indication: ERECTILE DYSFUNCTION
     Dosage: 20 MG, TOTAL DAILY, ORAL
     Route: 048
     Dates: start: 20041208, end: 20041222
  2. HYZAAR [Concomitant]
  3. CELEBREX [Concomitant]
  4. MULTIVITAMIN [Concomitant]

REACTIONS (5)
  - ERECTILE DYSFUNCTION [None]
  - FEELING HOT [None]
  - FLUSHING [None]
  - HEADACHE [None]
  - PYREXIA [None]
